FAERS Safety Report 10771264 (Version 3)
Quarter: 2016Q4

REPORT INFORMATION
  Report Type: Spontaneous
  Country: US (occurrence: US)
  Receive Date: 20150206
  Receipt Date: 20161219
  Transmission Date: 20170206
  Serious: Yes (Other)
  Sender: FDA-Public Use
  Company Number: US-PFIZER INC-2015042295

PATIENT
  Age: 49 Year
  Sex: Female

DRUGS (42)
  1. EFFEXOR XR [Suspect]
     Active Substance: VENLAFAXINE HYDROCHLORIDE
     Dosage: 75 MG, 1X/DAY
     Route: 048
  2. ABILIFY [Concomitant]
     Active Substance: ARIPIPRAZOLE
     Indication: PAIN
  3. PLAQUENIL [Concomitant]
     Active Substance: HYDROXYCHLOROQUINE SULFATE
     Indication: PAIN
  4. VIVACTIL [Concomitant]
     Active Substance: PROTRIPTYLINE HYDROCHLORIDE
     Indication: PAIN
  5. LYRICA [Concomitant]
     Active Substance: PREGABALIN
     Indication: PAIN
  6. CYTOMEL [Concomitant]
     Active Substance: LIOTHYRONINE SODIUM
     Dosage: 5 ?G, DAILY
     Route: 048
  7. EFFEXOR XR [Suspect]
     Active Substance: VENLAFAXINE HYDROCHLORIDE
     Dosage: 200 MG, UNK
     Route: 048
  8. VITAMIN D2 [Concomitant]
     Active Substance: ERGOCALCIFEROL
     Indication: PAIN
  9. PLAQUENIL [Concomitant]
     Active Substance: HYDROXYCHLOROQUINE SULFATE
     Indication: FIBROMYALGIA
     Dosage: 200 MG TAB 1 TAB, DAILY
     Route: 048
     Dates: start: 20140910
  10. ZOFRAN [Concomitant]
     Active Substance: ONDANSETRON HYDROCHLORIDE
     Indication: MIGRAINE WITHOUT AURA
  11. VIVACTIL [Concomitant]
     Active Substance: PROTRIPTYLINE HYDROCHLORIDE
     Indication: DEPRESSION
  12. WELLBUTRIN [Concomitant]
     Active Substance: BUPROPION HYDROCHLORIDE
     Indication: DEPRESSION
     Dosage: 75 MG TAB 1 TAB, 1X/DAY
     Route: 048
     Dates: start: 20150106, end: 201501
  13. TOPAMAX [Concomitant]
     Active Substance: TOPIRAMATE
     Indication: MIGRAINE WITHOUT AURA
     Dosage: 37.5 MG (25 MG TAB 1.5 TABS), 2X/DAY
     Route: 048
     Dates: start: 20140924
  14. TOPAMAX [Concomitant]
     Active Substance: TOPIRAMATE
     Dosage: 50 MG, 2X/DAY
     Route: 048
  15. EFFEXOR XR [Suspect]
     Active Substance: VENLAFAXINE HYDROCHLORIDE
     Indication: DEPRESSION
     Dosage: UNK
     Route: 048
     Dates: start: 2009
  16. EFFEXOR XR [Suspect]
     Active Substance: VENLAFAXINE HYDROCHLORIDE
     Dosage: 150 MG, 3X/DAY
     Route: 048
     Dates: start: 20141029
  17. ATARAX [Concomitant]
     Active Substance: HYDROXYZINE\HYDROXYZINE HYDROCHLORIDE
     Indication: PRURITUS
     Dosage: 25 MG, AS NEEDED (25MG TAB 1 TAB EVERY 8 HOURS AS NEEDED)
     Route: 048
     Dates: start: 20140219
  18. REMERON [Concomitant]
     Active Substance: MIRTAZAPINE
     Indication: DEPRESSION
     Dosage: 60 MG, 1X/DAY (30MG TAB 2 TAB DAILY AT BEDTIME)
     Route: 048
     Dates: start: 20150118
  19. SYNTHROID [Concomitant]
     Active Substance: LEVOTHYROXINE SODIUM
     Indication: HYPOTHYROIDISM
     Dosage: 100 ?G, DAILY (100 MCG TAB 1 TAB DAILY)
     Route: 048
     Dates: start: 20140910
  20. REMERON [Concomitant]
     Active Substance: MIRTAZAPINE
     Indication: MIGRAINE
  21. ZOFRAN [Concomitant]
     Active Substance: ONDANSETRON HYDROCHLORIDE
     Indication: NAUSEA
     Dosage: 8 MG, AS NEEDED (8MG 1 TAB ON TONGUE AND LET DISSOLVE EVERY 12 HOURS AS NEEDED )
     Route: 048
     Dates: start: 20141015
  22. PHENERGAN [Concomitant]
     Active Substance: PROMETHAZINE HYDROCHLORIDE
     Indication: MIGRAINE WITHOUT AURA
  23. KEPPRA [Concomitant]
     Active Substance: LEVETIRACETAM
     Indication: PAIN
  24. WELLBUTRIN [Concomitant]
     Active Substance: BUPROPION HYDROCHLORIDE
     Dosage: 75 MG TAB 1 TAB, 2X/DAY
     Route: 048
     Dates: start: 201501
  25. COLASE [Concomitant]
     Indication: CONSTIPATION
     Dosage: 100 MG CAP 1 CAP, 2X/DAY
     Route: 048
     Dates: start: 20131127
  26. PLAQUENIL [Concomitant]
     Active Substance: HYDROXYCHLOROQUINE SULFATE
     Indication: MIGRAINE
  27. REMERON [Concomitant]
     Active Substance: MIRTAZAPINE
     Indication: PAIN
  28. PHENERGAN [Concomitant]
     Active Substance: PROMETHAZINE HYDROCHLORIDE
     Indication: NAUSEA
     Dosage: 25MG TAB 0.5-1 TAB EVERY 8 TO 12 HOURS AS NEEDED
     Route: 048
     Dates: start: 20140825
  29. VIVACTIL [Concomitant]
     Active Substance: PROTRIPTYLINE HYDROCHLORIDE
     Indication: MIGRAINE WITHOUT AURA
     Dosage: 10 MG, DAILY (10MG TAB 1 TAB DAILY AT BEDTIME)
     Route: 048
     Dates: start: 20140226
  30. VIVACTIL [Concomitant]
     Active Substance: PROTRIPTYLINE HYDROCHLORIDE
     Indication: FIBROMYALGIA
  31. VIVACTIL [Concomitant]
     Active Substance: PROTRIPTYLINE HYDROCHLORIDE
     Indication: MIGRAINE
  32. ABILIFY [Concomitant]
     Active Substance: ARIPIPRAZOLE
     Indication: DEPRESSION
     Dosage: 5 MG TAB 1 TAB, DAILY
     Route: 048
     Dates: start: 20141029
  33. ABILIFY [Concomitant]
     Active Substance: ARIPIPRAZOLE
     Indication: MIGRAINE
  34. KLONOPIN [Concomitant]
     Active Substance: CLONAZEPAM
     Indication: ANXIETY
     Dosage: 4 MG, DAILY (2 MG 2 TABS DAILY AT BEDTIME)
     Route: 048
     Dates: start: 20141029
  35. METHADOSE [Concomitant]
     Active Substance: METHADONE HYDROCHLORIDE
     Indication: MIGRAINE
  36. VITAMIN D2 [Concomitant]
     Active Substance: ERGOCALCIFEROL
     Indication: VITAMIN D DEFICIENCY
     Dosage: 50000 IU, WEEKLY (50000 UNIT CAP 1 CAP EVERY 7 DAYS)
     Route: 048
     Dates: start: 20140305
  37. VITAMIN D2 [Concomitant]
     Active Substance: ERGOCALCIFEROL
     Indication: MIGRAINE
  38. METHADOSE [Concomitant]
     Active Substance: METHADONE HYDROCHLORIDE
     Indication: PAIN
     Dosage: 5 MG, AS NEEDED (5MG TAB 1 TAB EVERY 12 HOURS AS NEEDED)
     Route: 048
     Dates: start: 20141231
  39. METHADOSE [Concomitant]
     Active Substance: METHADONE HYDROCHLORIDE
     Indication: MIGRAINE WITHOUT AURA
  40. IMITREX [Concomitant]
     Active Substance: SUMATRIPTAN SUCCINATE
     Indication: MIGRAINE WITHOUT AURA
     Dosage: 1 DF (20MG NASAL SOLUTION 1 SPRAY TO 1 NOSTRIL ONCE) AS NEEDED
     Route: 045
     Dates: start: 20140514
  41. LYRICA [Concomitant]
     Active Substance: PREGABALIN
     Indication: MIGRAINE
     Dosage: UNK
  42. KEPPRA [Concomitant]
     Active Substance: LEVETIRACETAM
     Indication: MIGRAINE
     Dosage: UNK

REACTIONS (6)
  - Upper limb fracture [Unknown]
  - Intentional overdose [Unknown]
  - Drug tolerance [Unknown]
  - Nausea [Unknown]
  - Suicide attempt [Unknown]
  - Suicidal ideation [Unknown]
